FAERS Safety Report 5956189-6 (Version None)
Quarter: 2008Q4

REPORT INFORMATION
  Report Type: 
  Country: None (occurrence: None)
  Receive Date: 20081112
  Receipt Date: 20081105
  Transmission Date: 20090506
  Serious: Yes (Hospitalization)
  Sender: FDA-Public Use
  Company Number: 2008S1000488

PATIENT
  Age: 68 Year
  Sex: Female

DRUGS (1)
  1. SORIATANE [Suspect]
     Indication: PSORIASIS
     Dosage: 25 MG; BIW; PO
     Route: 048
     Dates: end: 20081001

REACTIONS (2)
  - OESOPHAGEAL HAEMORRHAGE [None]
  - VOMITING [None]
